FAERS Safety Report 23054737 (Version 1)
Quarter: 2023Q4

REPORT INFORMATION
  Report Type: Spontaneous
  Country: US (occurrence: US)
  Receive Date: 20231011
  Receipt Date: 20231011
  Transmission Date: 20240110
  Serious: No
  Sender: FDA-Public Use
  Company Number: US-SANDOZ-SDZ2023US040804

PATIENT
  Sex: Female

DRUGS (2)
  1. RECLAST [Suspect]
     Active Substance: ZOLEDRONIC ACID
     Indication: Product used for unknown indication
     Dosage: UNK, 1ST INFUSION
     Route: 065
     Dates: start: 20231004
  2. ZYRTEC [Concomitant]
     Active Substance: CETIRIZINE HYDROCHLORIDE
     Indication: Product used for unknown indication
     Dosage: UNK, 2XDAILY
     Route: 065

REACTIONS (9)
  - Pyrexia [Unknown]
  - Upper-airway cough syndrome [Unknown]
  - Feeling hot [Unknown]
  - Pain [Unknown]
  - Tremor [Unknown]
  - Chills [Unknown]
  - Myalgia [Unknown]
  - Asthenia [Unknown]
  - Headache [Unknown]
